FAERS Safety Report 7333964-7 (Version None)
Quarter: 2011Q1

REPORT INFORMATION
  Report Type: 
  Country: None (occurrence: None)
  Receive Date: 20110302
  Receipt Date: 20110302
  Transmission Date: 20110831
  Serious: Yes (Hospitalization)
  Sender: FDA-Public Use
  Company Number: None

PATIENT
  Age: 47 Year
  Sex: Female
  Weight: 64.5 kg

DRUGS (1)
  1. STERILE WATER FOR INJECTION [Suspect]
     Indication: INFUSION
     Dosage: APPROX 250 ML IV INFUSION
     Route: 042
     Dates: start: 20101203

REACTIONS (3)
  - WRONG DRUG ADMINISTERED [None]
  - MEDICATION ERROR [None]
  - DRUG LABEL CONFUSION [None]
